FAERS Safety Report 7268444-0 (Version None)
Quarter: 2011Q1

REPORT INFORMATION
  Report Type: 
  Country: None (occurrence: None)
  Receive Date: 20110201
  Receipt Date: 20110125
  Transmission Date: 20110831
  Serious: Yes (Other)
  Sender: FDA-Public Use
  Company Number: US-PFIZER INC-2011019494

PATIENT
  Age: 27 Year
  Sex: Female

DRUGS (1)
  1. VORICONAZOLE [Suspect]

REACTIONS (3)
  - FLUORIDE INCREASED [None]
  - PAIN [None]
  - PERIOSTITIS [None]
